FAERS Safety Report 6107972-8 (Version None)
Quarter: 2009Q1

REPORT INFORMATION
  Report Type: 
  Country: None (occurrence: None)
  Receive Date: 20090305
  Receipt Date: 20090305
  Transmission Date: 20090719
  Serious: Yes (Other)
  Sender: FDA-Public Use
  Company Number: None

PATIENT
  Age: 38 Year
  Sex: Female
  Weight: 68.0396 kg

DRUGS (1)
  1. SCOPOLAMINE [Suspect]
     Indication: PROPHYLAXIS OF NAUSEA AND VOMITING
     Dosage: 1 PATCH 1 TRANSDERMAL
     Route: 062
     Dates: start: 20090129, end: 20090130

REACTIONS (3)
  - ASTHENOPIA [None]
  - CONFUSIONAL STATE [None]
  - VISION BLURRED [None]
